FAERS Safety Report 5330088-5 (Version None)
Quarter: 2007Q2

REPORT INFORMATION
  Report Type: 
  Country: None (occurrence: None)
  Receive Date: 20070521
  Receipt Date: 20070516
  Transmission Date: 20071010
  Serious: Yes (Hospitalization)
  Sender: FDA-Public Use
  Company Number: US-MERCK-0705USA03069

PATIENT
  Sex: Male

DRUGS (2)
  1. JANUVIA [Suspect]
     Indication: DIABETES MELLITUS NON-INSULIN-DEPENDENT
     Route: 048
     Dates: start: 20070501
  2. ACTOS [Concomitant]
     Route: 065
     Dates: end: 20070501

REACTIONS (1)
  - CARDIAC FAILURE CONGESTIVE [None]
